FAERS Safety Report 7821848-7 (Version None)
Quarter: 2011Q4

REPORT INFORMATION
  Report Type: 
  Country: None (occurrence: None)
  Receive Date: 20111018
  Receipt Date: 20110506
  Transmission Date: 20120403
  Serious: No
  Sender: FDA-Public Use
  Company Number: US-ASTRAZENECA-2011SE17027

PATIENT
  Age: 71 Year
  Sex: Female

DRUGS (2)
  1. SYMBICORT [Suspect]
     Indication: BRONCHITIS
     Dosage: 80/4.5 TWO PUFFS ONCE A DAY
     Route: 055
  2. SYMBICORT [Suspect]
     Dosage: 80/4.5 TWO PUFFS TWICE A DAY
     Route: 055

REACTIONS (3)
  - DRUG INEFFECTIVE [None]
  - CHEST DISCOMFORT [None]
  - CHEST PAIN [None]
